FAERS Safety Report 8588106-7 (Version None)
Quarter: 2012Q3

REPORT INFORMATION
  Report Type: 
  Country: None (occurrence: None)
  Receive Date: 20120813
  Receipt Date: 20120730
  Transmission Date: 20120928
  Serious: No
  Sender: FDA-Public Use
  Company Number: US-PFIZER INC-2012193405

PATIENT
  Sex: Male

DRUGS (1)
  1. LIPITOR [Suspect]
     Dosage: 40 MG (ONE HALF OF 80 MG TABLET), DAILY
     Route: 048

REACTIONS (3)
  - DIZZINESS [None]
  - ARTHRALGIA [None]
  - HEADACHE [None]
